FAERS Safety Report 16917637 (Version 4)
Quarter: 2021Q1

REPORT INFORMATION
  Report Type: Spontaneous
  Country: FR (occurrence: FR)
  Receive Date: 20191015
  Receipt Date: 20210305
  Transmission Date: 20210419
  Serious: Yes (Disabling)
  Sender: FDA-Public Use
  Company Number: FR-B.I. PHARMACEUTICALS,INC./RIDGEFIELD-2019-BI-106431

PATIENT
  Sex: Male
  Weight: 77 kg

DRUGS (2)
  1. TEMERIT DUO [Concomitant]
     Active Substance: HYDROCHLOROTHIAZIDE\NEBIVOLOL HYDROCHLORIDE
     Indication: PRODUCT USED FOR UNKNOWN INDICATION
  2. TWYNSTA [Suspect]
     Active Substance: AMLODIPINE BESYLATE\TELMISARTAN
     Indication: HYPERTENSION
     Route: 048
     Dates: start: 20170307, end: 20190814

REACTIONS (8)
  - Periodontitis [Unknown]
  - Tooth loss [Not Recovered/Not Resolved]
  - Loose tooth [Not Recovered/Not Resolved]
  - Pain [Not Recovered/Not Resolved]
  - Gingival hypertrophy [Recovered/Resolved]
  - Bone loss [Unknown]
  - Feeding disorder [Not Recovered/Not Resolved]
  - Weight decreased [Not Recovered/Not Resolved]
